FAERS Safety Report 21715505 (Version 1)
Quarter: 2022Q4

REPORT INFORMATION
  Report Type: Spontaneous
  Country: FR (occurrence: FR)
  Receive Date: 20221212
  Receipt Date: 20221212
  Transmission Date: 20230113
  Serious: Yes (Death, Other)
  Sender: FDA-Public Use
  Company Number: FR-BAXTER-2022BAX026305

PATIENT
  Age: 86 Year
  Sex: Male

DRUGS (3)
  1. DEXAMETHASONE [Suspect]
     Active Substance: DEXAMETHASONE
     Indication: Product used for unknown indication
     Dosage: 2 DOSE(S)/WEEK 2 WEEK(S)/CYCLE
     Route: 065
  2. CYCLOPHOSPHAMIDE [Suspect]
     Active Substance: CYCLOPHOSPHAMIDE
     Indication: Product used for unknown indication
     Dosage: 1 WEEK(S)/CYCLE, TREATMENT LINE 1
     Route: 065
     Dates: end: 20201117
  3. BORTEZOMIB [Suspect]
     Active Substance: BORTEZOMIB
     Indication: Product used for unknown indication
     Dosage: 2 DOSE(S)/WEEK 2 WEEK(S)/CYCLE, TREATMENT LINE 1
     Route: 065
     Dates: end: 20221117

REACTIONS (1)
  - Death [Fatal]

NARRATIVE: CASE EVENT DATE: 20201117
